FAERS Safety Report 5541543-7 (Version None)
Quarter: 2007Q4

REPORT INFORMATION
  Report Type: 
  Country: None (occurrence: None)
  Receive Date: 20071210
  Receipt Date: 20071203
  Transmission Date: 20080405
  Serious: Yes (Hospitalization, Other)
  Sender: FDA-Public Use
  Company Number: SG-RB-008722-07

PATIENT
  Age: 60 Year
  Sex: Male

DRUGS (1)
  1. SUBUTEX [Suspect]
     Dosage: DOSAGE UNKNOWN
     Route: 065

REACTIONS (3)
  - ABSCESS [None]
  - DRUG ABUSE [None]
  - INCORRECT ROUTE OF DRUG ADMINISTRATION [None]
